FAERS Safety Report 15209099 (Version 1)
Quarter: 2018Q4

REPORT INFORMATION
  Report Type: Spontaneous
  Country: US (occurrence: US)
  Receive Date: 20180727
  Receipt Date: 20180727
  Transmission Date: 20190204
  Serious: No
  Sender: FDA-Public Use
  Company Number: US-BRACCO-2018US02962

PATIENT

DRUGS (1)
  1. TAGITOL V [Suspect]
     Active Substance: BARIUM SULFATE
     Indication: DIAGNOSTIC PROCEDURE

REACTIONS (2)
  - Hypersensitivity [Unknown]
  - Essential hypertension [Unknown]
